FAERS Safety Report 5322664-0 (Version None)
Quarter: 2007Q2

REPORT INFORMATION
  Report Type: 
  Country: None (occurrence: None)
  Receive Date: 20070507
  Receipt Date: 20070430
  Transmission Date: 20071010
  Serious: Yes (Hospitalization)
  Sender: FDA-Public Use
  Company Number: 2007BI009471

PATIENT
  Age: 48 Year
  Sex: Female

DRUGS (3)
  1. NATALIZUMAB [Suspect]
     Indication: MULTIPLE SCLEROSIS
     Dosage: 300 MG;QW;IV
     Route: 042
     Dates: start: 20070115
  2. AVONEX [Concomitant]
  3. BACLOFEN [Concomitant]

REACTIONS (3)
  - ASTHENIA [None]
  - DIPLOPIA [None]
  - MEDICAL DEVICE COMPLICATION [None]
